FAERS Safety Report 9346567 (Version 1)
Quarter: 2013Q2

REPORT INFORMATION
  Report Type: Spontaneous
  Country: US (occurrence: US)
  Receive Date: 20130613
  Receipt Date: 20130613
  Transmission Date: 20140414
  Serious: Yes (Other)
  Sender: FDA-Public Use
  Company Number: US-BAYER-2013-071956

PATIENT
  Age: 23 Year
  Sex: Female
  Weight: 66.21 kg

DRUGS (1)
  1. YASMIN [Suspect]

REACTIONS (1)
  - Deep vein thrombosis [None]
